FAERS Safety Report 25460461 (Version 1)
Quarter: 2025Q2

REPORT INFORMATION
  Report Type: Spontaneous
  Country: FR (occurrence: FR)
  Receive Date: 20250620
  Receipt Date: 20250620
  Transmission Date: 20250717
  Serious: Yes (Hospitalization)
  Sender: MYLAN
  Company Number: FR-MYLANLABS-2025M1050779

PATIENT
  Age: 72 Year
  Sex: Male

DRUGS (8)
  1. TACROLIMUS [Interacting]
     Active Substance: TACROLIMUS
     Indication: Immunosuppressant drug therapy
     Dosage: 1.5 MILLIGRAM, BID (IMMEDIATE-RELEASE TABLET)
  2. TACROLIMUS [Interacting]
     Active Substance: TACROLIMUS
     Dosage: 1.5 MILLIGRAM, BID (RESTARTED ON DAY 1 OF ADMISSION AND DISCONTINUED ON DAY 6)
  3. TACROLIMUS [Interacting]
     Active Substance: TACROLIMUS
  4. TACROLIMUS [Interacting]
     Active Substance: TACROLIMUS
  5. TACROLIMUS [Interacting]
     Active Substance: TACROLIMUS
     Dosage: 1.5 MILLIGRAM, BID (INITIAL DOSAGE ON DAY?22)
  6. PAXLOVID [Interacting]
     Active Substance: NIRMATRELVIR\RITONAVIR
     Indication: COVID-19 pneumonia
  7. VEKLURY [Interacting]
     Active Substance: REMDESIVIR
     Indication: COVID-19 pneumonia
  8. MYCOPHENOLATE MOFETIL [Concomitant]
     Active Substance: MYCOPHENOLATE MOFETIL
     Indication: Immunosuppressant drug therapy
     Dosage: 500 MILLIGRAM, BID

REACTIONS (12)
  - Overdose [Recovered/Resolved]
  - Toxicity to various agents [Recovered/Resolved]
  - Drug interaction [Recovered/Resolved]
  - Thrombotic microangiopathy [Recovered/Resolved]
  - Microangiopathy [Recovered/Resolved]
  - Renal impairment [Recovered/Resolved]
  - Hypertensive crisis [Recovered/Resolved]
  - Confusional state [Recovered/Resolved]
  - Agitation [Recovered/Resolved]
  - Somnolence [Recovered/Resolved]
  - Red blood cell count decreased [Recovered/Resolved]
  - Haematocrit decreased [Recovered/Resolved]
